FAERS Safety Report 17725949 (Version 1)
Quarter: 2020Q2

REPORT INFORMATION
  Report Type: Spontaneous
  Country: BR (occurrence: BR)
  Receive Date: 20200429
  Receipt Date: 20200429
  Transmission Date: 20200714
  Serious: Yes (Other)
  Sender: FDA-Public Use
  Company Number: NVSC2020BR083796

PATIENT
  Sex: Female

DRUGS (1)
  1. COSENTYX [Suspect]
     Active Substance: SECUKINUMAB
     Indication: PRODUCT USED FOR UNKNOWN INDICATION
     Dosage: UNK (1 YEAR)
     Route: 065

REACTIONS (3)
  - Pharyngitis [Not Recovered/Not Resolved]
  - Respiratory tract infection [Unknown]
  - Ear infection [Unknown]
